FAERS Safety Report 9665115 (Version 1)
Quarter: 2013Q4

REPORT INFORMATION
  Report Type: Spontaneous
  Country: GB (occurrence: GB)
  Receive Date: 20131101
  Receipt Date: 20131101
  Transmission Date: 20140711
  Serious: Yes (Hospitalization, Other)
  Sender: FDA-Public Use
  Company Number: GB-ASTRAZENECA-2013SE79517

PATIENT
  Age: 462 Day
  Sex: Female
  Weight: 6.5 kg

DRUGS (1)
  1. SYNAGIS [Suspect]
     Route: 030
     Dates: start: 20121015

REACTIONS (2)
  - Bronchiolitis [Unknown]
  - Respiratory syncytial virus test positive [Unknown]
